FAERS Safety Report 10070525 (Version 2)
Quarter: 2014Q2

REPORT INFORMATION
  Report Type: Spontaneous
  Country: US (occurrence: US)
  Receive Date: 20140410
  Receipt Date: 20140410
  Transmission Date: 20141212
  Serious: Yes (Other)
  Sender: FDA-Public Use
  Company Number: US-BEH-2011029045

PATIENT
  Age: 8 Year
  Sex: Male
  Weight: 24 kg

DRUGS (9)
  1. HIZENTRA [Suspect]
     Indication: COMBINED IMMUNODEFICIENCY
     Dosage: 20 ML WEEKLY
     Route: 058
     Dates: start: 20110205
  2. HIZENTRA [Suspect]
     Dosage: 1-4 SITES
     Route: 058
  3. NASONEX [Concomitant]
  4. HYDROXYZINE [Concomitant]
  5. LORATADINE [Concomitant]
  6. DIPHENHYDRAMINE [Concomitant]
  7. LIDOCAINE/PRILOCAINE [Concomitant]
  8. EPIPEN [Concomitant]
  9. TYLENOL [Concomitant]

REACTIONS (3)
  - Infusion site infection [Unknown]
  - Infusion site erythema [Unknown]
  - Rash [Unknown]
